FAERS Safety Report 6935292-8 (Version None)
Quarter: 2010Q3

REPORT INFORMATION
  Report Type: 
  Country: None (occurrence: None)
  Receive Date: 20100822
  Receipt Date: 20100719
  Transmission Date: 20110219
  Serious: Yes (Hospitalization, Other)
  Sender: FDA-Public Use
  Company Number: PHEH2008US05925

PATIENT
  Sex: Female

DRUGS (3)
  1. ESTRADERM [Suspect]
     Indication: MENOPAUSE
     Dosage: UNK
     Route: 062
     Dates: start: 19920101, end: 19970101
  2. PREMARIN [Suspect]
     Indication: MENOPAUSE
     Dosage: UNK
     Dates: start: 19920101, end: 19970101
  3. PROVERA [Suspect]
     Indication: MENOPAUSE
     Dosage: UNK
     Dates: start: 19920101, end: 19970101

REACTIONS (34)
  - ANXIETY [None]
  - ARTHRITIS [None]
  - BLOOD CALCIUM INCREASED [None]
  - BREAST ABSCESS [None]
  - BREAST CANCER [None]
  - BREAST DISORDER [None]
  - BREAST FIBROSIS [None]
  - BREAST HYPERPLASIA [None]
  - BREAST INFLAMMATION [None]
  - BREAST LUMP REMOVAL [None]
  - CERVICAL DYSPLASIA [None]
  - CERVICITIS [None]
  - DECREASED INTEREST [None]
  - DYSPNOEA [None]
  - ECZEMA [None]
  - ENDOMETRIAL HYPERTROPHY [None]
  - FAT NECROSIS [None]
  - FEELING ABNORMAL [None]
  - FUNGAL INFECTION [None]
  - HOT FLUSH [None]
  - HYPERTENSION [None]
  - IRON DEFICIENCY ANAEMIA [None]
  - LEUKOPENIA [None]
  - LIFE EXPECTANCY SHORTENED [None]
  - MASTECTOMY [None]
  - MUSCULOSKELETAL CHEST PAIN [None]
  - PAIN [None]
  - PSYCHIATRIC SYMPTOM [None]
  - RADIATION SKIN INJURY [None]
  - SCAR [None]
  - THALASSAEMIA [None]
  - UTERINE DILATION AND CURETTAGE [None]
  - UTERINE ENLARGEMENT [None]
  - UTERINE LEIOMYOMA [None]
